FAERS Safety Report 19707964 (Version 1)
Quarter: 2021Q3

REPORT INFORMATION
  Report Type: Spontaneous
  Country: US (occurrence: US)
  Receive Date: 20210816
  Receipt Date: 20210816
  Transmission Date: 20211014
  Serious: No
  Sender: FDA-Public Use
  Company Number: US-GALEN SPECIALTY PHARMA US LLC-AE-2021-0416

PATIENT
  Age: 23 Month
  Sex: Male

DRUGS (1)
  1. SYNERA [Suspect]
     Active Substance: LIDOCAINE\TETRACAINE
     Route: 061

REACTIONS (1)
  - Product use issue [Unknown]
